FAERS Safety Report 22039596 (Version 1)
Quarter: 2023Q1

REPORT INFORMATION
  Report Type: Spontaneous
  Country: US (occurrence: None)
  Receive Date: 20230225
  Receipt Date: 20230225
  Transmission Date: 20230418
  Serious: Yes (Disabling)
  Sender: FDA-Public Use
  Company Number: None

PATIENT
  Age: 54 Year
  Sex: Female

DRUGS (2)
  1. ARTIFICIAL EYE [Suspect]
     Active Substance: MINERAL OIL\PETROLATUM
     Indication: Dry eye
     Dosage: FREQUENCY : 4 TIMES A DAY;?
     Route: 061
     Dates: start: 20220930, end: 20230224
  2. ARTIFICIAL EYE [Suspect]
     Active Substance: MINERAL OIL\PETROLATUM
     Indication: Sarcoidosis

REACTIONS (6)
  - Instillation site pruritus [None]
  - Instillation site dryness [None]
  - Eye discharge [None]
  - Corneal scar [None]
  - Blindness [None]
  - Inability to afford medication [None]

NARRATIVE: CASE EVENT DATE: 20221230
